FAERS Safety Report 18787189 (Version 1)
Quarter: 2021Q1

REPORT INFORMATION
  Report Type: Spontaneous
  Country: US (occurrence: US)
  Receive Date: 20210126
  Receipt Date: 20210126
  Transmission Date: 20210419
  Serious: No
  Sender: FDA-Public Use
  Company Number: US-LUPIN PHARMACEUTICALS INC.-2021-00497

PATIENT
  Age: 23 Year
  Sex: Female
  Weight: 69.39 kg

DRUGS (1)
  1. SOLOSEC [Suspect]
     Active Substance: SECNIDAZOLE
     Indication: BACTERIAL VAGINOSIS
     Dosage: 2 GRAM, QD (TOOK ONE DOSE ONLY)
     Route: 048
     Dates: start: 20201224, end: 20201224

REACTIONS (1)
  - Vomiting [Recovered/Resolved]

NARRATIVE: CASE EVENT DATE: 20201224
